APPROVED DRUG PRODUCT: ELIPHOS
Active Ingredient: CALCIUM ACETATE
Strength: 667MG
Dosage Form/Route: TABLET;ORAL
Application: A078502 | Product #001
Applicant: CYPRESS PHARMACEUTICAL INC
Approved: Nov 25, 2008 | RLD: No | RS: No | Type: DISCN